FAERS Safety Report 10219998 (Version 1)
Quarter: 2014Q2

REPORT INFORMATION
  Report Type: Report from Study
  Country: US (occurrence: US)
  Receive Date: 20140605
  Receipt Date: 20140605
  Transmission Date: 20141212
  Serious: Yes (Other)
  Sender: FDA-Public Use
  Company Number: PHEH2014US011279

PATIENT
  Sex: Male

DRUGS (1)
  1. EXFORGE [Suspect]
     Route: 048

REACTIONS (1)
  - Cerebrovascular accident [Unknown]
